FAERS Safety Report 6134905-0 (Version None)
Quarter: 2009Q1

REPORT INFORMATION
  Report Type: 
  Country: None (occurrence: None)
  Receive Date: 20090327
  Receipt Date: 20090317
  Transmission Date: 20090719
  Serious: Yes (Hospitalization)
  Sender: FDA-Public Use
  Company Number: CH-ELI_LILLY_AND_COMPANY-CH200810004743

PATIENT
  Age: 85 Year
  Sex: Female
  Weight: 52 kg

DRUGS (14)
  1. CYMBALTA [Suspect]
     Dosage: 30 MG, DAILY (1/D)
     Route: 048
     Dates: start: 20080528, end: 20080529
  2. CYMBALTA [Interacting]
     Dosage: 60 MG, DAILY (1/D)
     Route: 048
     Dates: start: 20080530, end: 20080601
  3. CYMBALTA [Interacting]
     Dosage: 90 MG, DAILY (1/D)
     Route: 048
     Dates: start: 20080602, end: 20080603
  4. CYMBALTA [Interacting]
     Dosage: 120 MG, DAILY (1/D)
     Route: 048
     Dates: start: 20080604, end: 20080611
  5. CYMBALTA [Interacting]
     Dosage: 180 MG, DAILY (1/D)
     Route: 048
     Dates: start: 20080612, end: 20080612
  6. CYMBALTA [Interacting]
     Dosage: 120 MG, DAILY (1/D)
     Route: 048
     Dates: start: 20080613
  7. ZYPREXA [Interacting]
     Dosage: 1.25 MG, DAILY (1/D)
     Route: 048
     Dates: start: 20080527, end: 20080601
  8. ZYPREXA [Interacting]
     Dosage: 2.5 MG, DAILY (1/D)
     Route: 048
     Dates: start: 20080602, end: 20080603
  9. ZYPREXA [Interacting]
     Dosage: 5 MG, DAILY (1/D)
     Route: 048
     Dates: start: 20080604, end: 20080609
  10. ZYPREXA [Interacting]
     Dosage: 2.5 MG, DAILY (1/D)
     Route: 048
     Dates: start: 20080610
  11. AMLODIPINE BESYLATE [Concomitant]
     Dosage: 2.5 MG, DAILY (1/D)
     Route: 048
     Dates: start: 20080606, end: 20080623
  12. ASPIRIN [Concomitant]
     Dosage: 100 MG, DAILY (1/D)
     Route: 048
     Dates: start: 20080527
  13. SIMVASTATIN [Concomitant]
     Dosage: 20 MEQ, DAILY (1/D)
     Route: 048
     Dates: start: 20080627
  14. POTASSIUM CHLORIDE [Concomitant]
     Dosage: 3 D/F, DAILY (1/D)
     Route: 065
     Dates: start: 20080606, end: 20080611

REACTIONS (3)
  - ATAXIA [None]
  - DRUG INTERACTION [None]
  - TREMOR [None]
